FAERS Safety Report 6791142-4 (Version None)
Quarter: 2010Q2

REPORT INFORMATION
  Report Type: 
  Country: None (occurrence: None)
  Receive Date: 20100624
  Receipt Date: 20100616
  Transmission Date: 20101027
  Serious: Yes (Hospitalization, Other)
  Sender: FDA-Public Use
  Company Number: BR-ABBOTT-10P-020-0635846-00

PATIENT
  Sex: Female
  Weight: 59 kg

DRUGS (6)
  1. HUMIRA [Suspect]
     Indication: RHEUMATOID ARTHRITIS
     Route: 058
     Dates: start: 20100301, end: 20100401
  2. HUMIRA [Suspect]
     Dates: start: 20100501
  3. ARAVA [Concomitant]
     Indication: RHEUMATOID ARTHRITIS
     Route: 048
  4. ARTROLIVE [Concomitant]
     Indication: RHEUMATOID ARTHRITIS
     Route: 048
  5. METHOTREXATE [Concomitant]
     Indication: RHEUMATOID ARTHRITIS
     Route: 058
  6. CLIANE [Concomitant]
     Indication: MENOPAUSE
     Route: 048

REACTIONS (5)
  - BLOOD PRESSURE ABNORMAL [None]
  - DYSPNOEA [None]
  - MITRAL VALVE DISEASE [None]
  - THYROID NEOPLASM [None]
  - URTICARIA [None]
